FAERS Safety Report 24080868 (Version 3)
Quarter: 2024Q3

REPORT INFORMATION
  Report Type: Report from Study
  Country: US (occurrence: US)
  Receive Date: 20240711
  Receipt Date: 20240809
  Transmission Date: 20241017
  Serious: Yes (Hospitalization, Other)
  Sender: INSMED
  Company Number: US-INSMED-2024-00333-USAA

PATIENT
  Sex: Male

DRUGS (2)
  1. ARIKAYCE [Suspect]
     Active Substance: AMIKACIN
     Indication: Mycobacterium avium complex infection
     Dosage: 590 MILLIGRAM, QD
     Route: 055
     Dates: start: 20240122, end: 202405
  2. ARIKAYCE [Suspect]
     Active Substance: AMIKACIN
     Dosage: 590 MILLIGRAM, QD
     Route: 055
     Dates: start: 2024

REACTIONS (19)
  - Hospitalisation [Unknown]
  - Spinal operation [Unknown]
  - Mycobacterium abscessus infection [Unknown]
  - Drug hypersensitivity [Unknown]
  - Palpitations [Recovering/Resolving]
  - Sputum increased [Recovered/Resolved]
  - Pruritus [Not Recovered/Not Resolved]
  - Dysgeusia [Recovered/Resolved]
  - Dysphonia [Not Recovered/Not Resolved]
  - Cough [Not Recovered/Not Resolved]
  - Fatigue [Recovering/Resolving]
  - Adverse drug reaction [Unknown]
  - Oropharyngeal pain [Not Recovered/Not Resolved]
  - Chest discomfort [Not Recovered/Not Resolved]
  - Malaise [Unknown]
  - Throat irritation [Unknown]
  - Dyspnoea [Recovered/Resolved]
  - Product dose omission issue [Unknown]
  - Therapy interrupted [Unknown]

NARRATIVE: CASE EVENT DATE: 20240101
